FAERS Safety Report 8343275-9 (Version None)
Quarter: 2012Q2

REPORT INFORMATION
  Report Type: 
  Country: None (occurrence: None)
  Receive Date: 20120508
  Receipt Date: 20120424
  Transmission Date: 20120825
  Serious: Yes (Hospitalization)
  Sender: FDA-Public Use
  Company Number: IT-CELGENEUS-083-21880-12042502

PATIENT

DRUGS (2)
  1. REVLIMID [Suspect]
     Indication: MYELOMA RECURRENCE
     Dosage: 15 MILLIGRAM
     Route: 048
     Dates: start: 20110704, end: 20111116
  2. COUMADIN [Concomitant]
     Route: 048
     Dates: start: 20110704, end: 20111116

REACTIONS (1)
  - INTESTINAL ISCHAEMIA [None]
